FAERS Safety Report 8174978-7 (Version None)
Quarter: 2012Q1

REPORT INFORMATION
  Report Type: 
  Country: None (occurrence: None)
  Receive Date: 20120229
  Receipt Date: 20120220
  Transmission Date: 20120608
  Serious: Yes (Hospitalization, Other)
  Sender: FDA-Public Use
  Company Number: PHHY2012DE006548

PATIENT
  Sex: Female
  Weight: 65 kg

DRUGS (9)
  1. LERCANIDIPINE [Concomitant]
     Dosage: 20 MG/DAY
     Route: 048
     Dates: start: 20110207
  2. RASILEZ HCT [Suspect]
     Indication: HYPERTENSION
     Dosage: 1 DF, QD
     Route: 048
     Dates: start: 20110207
  3. THIENOPYRIDIN [Concomitant]
     Dates: start: 20100121, end: 20100709
  4. FLECAINIDE [Concomitant]
     Dosage: 100 MG/DAY
     Route: 048
     Dates: start: 20110702
  5. BISOPROLOL [Concomitant]
     Dosage: 7.5 MG/DAY
     Route: 048
     Dates: start: 20080924
  6. SIMVASTATIN [Concomitant]
     Dosage: 40 MG/DAY
     Route: 048
     Dates: start: 20080924
  7. DIOVAN [Suspect]
     Indication: HYPERTENSION
     Dosage: 1 DF, QD
     Route: 048
     Dates: start: 20100121, end: 20110207
  8. ASPIRIN [Concomitant]
     Dosage: 100 MG/DAY
     Route: 048
     Dates: start: 20080924
  9. FALITHROM [Concomitant]
     Dosage: 3 MG/DAY
     Route: 048
     Dates: start: 20110709

REACTIONS (5)
  - AORTIC ANEURYSM [None]
  - CEREBRAL ISCHAEMIA [None]
  - ATRIAL FIBRILLATION [None]
  - TRANSIENT ISCHAEMIC ATTACK [None]
  - AORTIC VALVE INCOMPETENCE [None]
